FAERS Safety Report 5131921-2 (Version None)
Quarter: 2006Q4

REPORT INFORMATION
  Report Type: 
  Country: None (occurrence: None)
  Receive Date: 20061016
  Receipt Date: 20061002
  Transmission Date: 20070319
  Serious: Yes (Hospitalization, Other)
  Sender: FDA-Public Use
  Company Number: 2006120298

PATIENT
  Sex: Male
  Weight: 76.2043 kg

DRUGS (1)
  1. DETROL LA [Suspect]
     Indication: RENAL DISORDER
     Dates: start: 20040101

REACTIONS (4)
  - CEREBROVASCULAR ACCIDENT [None]
  - DRUG INEFFECTIVE [None]
  - ENURESIS [None]
  - SPEECH DISORDER [None]
